FAERS Safety Report 6941272-9 (Version None)
Quarter: 2010Q3

REPORT INFORMATION
  Report Type: 
  Country: None (occurrence: None)
  Receive Date: 20100825
  Receipt Date: 20100730
  Transmission Date: 20110219
  Serious: No
  Sender: FDA-Public Use
  Company Number: US-BRISTOL-MYERS SQUIBB COMPANY-15218498

PATIENT
  Age: 61 Year
  Sex: Female

DRUGS (5)
  1. ONGLYZA [Suspect]
     Dates: start: 20100701
  2. PRANDIN [Concomitant]
  3. LOPRESSOR [Concomitant]
  4. RYTHMOL [Concomitant]
  5. LASIX [Concomitant]

REACTIONS (1)
  - BLOOD GLUCOSE INCREASED [None]
